FAERS Safety Report 6400300-X (Version None)
Quarter: 2009Q4

REPORT INFORMATION
  Report Type: 
  Country: None (occurrence: None)
  Receive Date: 20091014
  Receipt Date: 20091008
  Transmission Date: 20100525
  Serious: Yes (Death, Hospitalization, Other)
  Sender: FDA-Public Use
  Company Number: NO-BRISTOL-MYERS SQUIBB COMPANY-14787840

PATIENT
  Age: 40 Year
  Sex: Female

DRUGS (4)
  1. ATAZANAVIR [Interacting]
     Dates: start: 20060101
  2. METADON [Interacting]
  3. KIVEXA [Suspect]
     Dates: start: 20060101
  4. TRIZIVIR [Concomitant]

REACTIONS (5)
  - DRUG INTERACTION [None]
  - ELECTROCARDIOGRAM QT PROLONGED [None]
  - HEPATIC FAILURE [None]
  - SYNCOPE [None]
  - TORSADE DE POINTES [None]
